FAERS Safety Report 9541505 (Version 1)
Quarter: 2013Q3

REPORT INFORMATION
  Report Type: Spontaneous
  Country: US (occurrence: None)
  Receive Date: 20130919
  Receipt Date: 20130919
  Transmission Date: 20140515
  Serious: Yes (Other)
  Sender: FDA-Public Use
  Company Number: None

PATIENT
  Age: 65 Year
  Sex: Female
  Weight: 74 kg

DRUGS (1)
  1. CIPROFLOXACIN [Suspect]
     Indication: SURGERY
     Dosage: CIPROFLOXACIN IVBP 400MG IV
     Route: 042
     Dates: start: 20130906

REACTIONS (2)
  - Infusion site pruritus [None]
  - Erythema [None]
